FAERS Safety Report 6010600-3 (Version None)
Quarter: 2008Q4

REPORT INFORMATION
  Report Type: 
  Country: None (occurrence: None)
  Receive Date: 20081218
  Receipt Date: 20080515
  Transmission Date: 20090506
  Serious: Yes (Other)
  Sender: FDA-Public Use
  Company Number: US-AMGEN-QUU272617

PATIENT
  Sex: Male
  Weight: 83.1 kg

DRUGS (5)
  1. ENBREL [Suspect]
     Indication: RHEUMATOID ARTHRITIS
     Route: 058
     Dates: start: 20030609, end: 20071101
  2. SYNTHROID [Concomitant]
     Dates: start: 20000101
  3. SUCRALFATE [Concomitant]
  4. OMEPRAZOLE [Concomitant]
  5. FISH OIL [Concomitant]

REACTIONS (7)
  - ATELECTASIS [None]
  - DEEP VEIN THROMBOSIS [None]
  - LYMPHOMA [None]
  - NAUSEA [None]
  - PROSTATOMEGALY [None]
  - RENAL CYST [None]
  - WEIGHT DECREASED [None]
